FAERS Safety Report 7266282-6 (Version None)
Quarter: 2011Q1

REPORT INFORMATION
  Report Type: 
  Country: None (occurrence: None)
  Receive Date: 20110131
  Receipt Date: 20110118
  Transmission Date: 20110831
  Serious: Yes (Hospitalization, Other)
  Sender: FDA-Public Use
  Company Number: US-ASTRAZENECA-2010SE51469

PATIENT
  Age: 80 Year
  Sex: Male

DRUGS (1)
  1. NEXIUM [Suspect]
     Route: 048

REACTIONS (5)
  - PROSTATE CANCER [None]
  - DYSPEPSIA [None]
  - CORONARY ARTERIAL STENT INSERTION [None]
  - DRUG DOSE OMISSION [None]
  - MYOCARDIAL INFARCTION [None]
